FAERS Safety Report 12800198 (Version 2)
Quarter: 2016Q4

REPORT INFORMATION
  Report Type: Report from Study
  Country: None (occurrence: US)
  Receive Date: 20160930
  Receipt Date: 20161003
  Transmission Date: 20170207
  Serious: Yes (Other)
  Sender: FDA-Public Use
  Company Number: US-ALLERGAN-1669483US

PATIENT
  Age: 84 Year
  Sex: Female
  Weight: 72.56 kg

DRUGS (8)
  1. BLINDED PLACEBO [Suspect]
     Active Substance: INVESTIGATIONAL PRODUCT
     Indication: PRODUCT USED FOR UNKNOWN INDICATION
     Dosage: UNK
     Dates: start: 20160727, end: 20160727
  2. BLINDED BIMATOPROST 0.01 MG INS (11047X) [Suspect]
     Active Substance: BIMATOPROST
     Indication: PRODUCT USED FOR UNKNOWN INDICATION
     Dosage: UNK
     Dates: start: 20160727, end: 20160727
  3. BLINDED PLACEBO [Suspect]
     Active Substance: INVESTIGATIONAL PRODUCT
     Dosage: UNK
     Dates: start: 20151215, end: 20151215
  4. BLINDED TIMOLOL 5MG/ML SOL (8770X) [Suspect]
     Active Substance: TIMOLOL
     Dosage: UNK
     Dates: start: 20151215, end: 20151215
  5. BLINDED TIMOLOL 5MG/ML SOL (8770X) [Suspect]
     Active Substance: TIMOLOL
     Indication: PRODUCT USED FOR UNKNOWN INDICATION
     Dosage: UNK
     Dates: start: 20160727, end: 20160727
  6. BLINDED BIMATOPROST 0.015 MG INS (11048X) [Suspect]
     Active Substance: BIMATOPROST
     Indication: PRODUCT USED FOR UNKNOWN INDICATION
     Dosage: UNK
     Dates: start: 20160727, end: 20160727
  7. BLINDED BIMATOPROST 0.01 MG INS (11047X) [Suspect]
     Active Substance: BIMATOPROST
     Dosage: UNK
     Dates: start: 20151215, end: 20151215
  8. BLINDED BIMATOPROST 0.015 MG INS (11048X) [Suspect]
     Active Substance: BIMATOPROST
     Dosage: UNK
     Dates: start: 20151215, end: 20151215

REACTIONS (2)
  - Corneal endothelial cell loss [Not Recovered/Not Resolved]
  - Corneal oedema [Not Recovered/Not Resolved]

NARRATIVE: CASE EVENT DATE: 20160920
